FAERS Safety Report 20862177 (Version 2)
Quarter: 2022Q3

REPORT INFORMATION
  Report Type: Spontaneous
  Country: US (occurrence: US)
  Receive Date: 20220523
  Receipt Date: 20220704
  Transmission Date: 20221027
  Serious: Yes (Other)
  Sender: FDA-Public Use
  Company Number: US-ORGANON-O2204USA002327

PATIENT
  Age: 24 Year
  Sex: Female
  Weight: 122 kg

DRUGS (2)
  1. NEXPLANON [Suspect]
     Active Substance: ETONOGESTREL
     Dosage: 1 IMPLANT, QD, IN RIGHT ARM
     Route: 059
     Dates: start: 20200730, end: 20220418
  2. NEXPLANON [Suspect]
     Active Substance: ETONOGESTREL
     Dosage: 1 IMPLANT
     Route: 059

REACTIONS (8)
  - Device dislocation [Recovered/Resolved]
  - Device breakage [Recovered/Resolved]
  - Device breakage [Recovered/Resolved]
  - Complication of device removal [Recovered/Resolved]
  - Device placement issue [Recovered/Resolved]
  - Device placement issue [Recovered/Resolved]
  - Complication associated with device [Recovered/Resolved]
  - No adverse event [Unknown]

NARRATIVE: CASE EVENT DATE: 20200730
